FAERS Safety Report 18295368 (Version 1)
Quarter: 2020Q3

REPORT INFORMATION
  Report Type: Spontaneous
  Country: US (occurrence: US)
  Receive Date: 20200922
  Receipt Date: 20200922
  Transmission Date: 20201103
  Serious: No
  Sender: FDA-Public Use
  Company Number: None

PATIENT
  Age: 36 Year
  Sex: Female
  Weight: 60.75 kg

DRUGS (5)
  1. MISOPROSTOL. [Suspect]
     Active Substance: MISOPROSTOL
     Indication: ABORTION SPONTANEOUS
     Dosage: ?          QUANTITY:8 TABLET(S);OTHER FREQUENCY:4 TABLETS TWICE;OTHER ROUTE:BY KEEPING IN MOUTH FOR 20?30 MIN?
     Dates: start: 20200828, end: 20200829
  2. PRENATAL VITAMIN [Concomitant]
     Active Substance: VITAMINS
  3. LORATADINE. [Concomitant]
     Active Substance: LORATADINE
  4. DOCUSATE SODIUM. [Concomitant]
     Active Substance: DOCUSATE SODIUM
  5. BUPROPION. [Concomitant]
     Active Substance: BUPROPION

REACTIONS (3)
  - Pruritus [None]
  - Drug hypersensitivity [None]
  - Throat tightness [None]

NARRATIVE: CASE EVENT DATE: 20200828
